FAERS Safety Report 4359422-X (Version None)
Quarter: 2004Q2

REPORT INFORMATION
  Report Type: 
  Country: None (occurrence: None)
  Receive Date: 20040518
  Receipt Date: 20040206
  Transmission Date: 20050107
  Serious: Yes (Death, Hospitalization)
  Sender: FDA-Public Use
  Company Number: 200410342JP

PATIENT
  Age: 76 Year
  Sex: Male
  Weight: 51.2 kg

DRUGS (3)
  1. RILUTEK [Suspect]
     Indication: AMYOTROPHIC LATERAL SCLEROSIS
     Route: 048
     Dates: start: 20040109, end: 20040128
  2. LANDSEN [Concomitant]
     Indication: EPILEPSY
     Route: 048
     Dates: start: 20040109, end: 20040128
  3. MAGNESIUM OXIDE [Concomitant]
     Indication: CONSTIPATION
     Route: 048
     Dates: start: 20040109, end: 20040128

REACTIONS (13)
  - BLOOD PRESSURE DECREASED [None]
  - CHOLELITHIASIS [None]
  - DELIRIUM [None]
  - DIALYSIS [None]
  - DISSEMINATED INTRAVASCULAR COAGULATION [None]
  - DRUG INEFFECTIVE [None]
  - HYPERPYREXIA [None]
  - MUSCULOSKELETAL STIFFNESS [None]
  - NECK PAIN [None]
  - PANCREATITIS ACUTE [None]
  - PLATELET COUNT DECREASED [None]
  - PNEUMONIA [None]
  - RENAL FAILURE ACUTE [None]
